FAERS Safety Report 5614654-5 (Version None)
Quarter: 2008Q1

REPORT INFORMATION
  Report Type: 
  Country: None (occurrence: None)
  Receive Date: 20080130
  Receipt Date: 20080116
  Transmission Date: 20080703
  Serious: Yes (Hospitalization)
  Sender: FDA-Public Use
  Company Number: APP200800031

PATIENT
  Age: 36 Year
  Sex: Female
  Weight: 71 kg

DRUGS (13)
  1. CEFAZOLIN [Suspect]
     Indication: PYREXIA
     Dosage: (2 GM,ONCE), INTRAVENOUS
     Route: 042
     Dates: start: 20080108, end: 20080108
  2. VANCOMYCIN HCL [Suspect]
     Indication: PYREXIA
     Dosage: (1500 MG,ONCE), INTRAVENOUS
     Route: 042
     Dates: start: 20080108, end: 20080108
  3. GENTAMICIN [Concomitant]
  4. CARBAMAZEPINE [Concomitant]
  5. RENOVITE (RENA-VITE /01636101/) [Concomitant]
  6. HYDROXYCHLOROQUINE SULFATE [Concomitant]
  7. WARFARIN SODIUM [Concomitant]
  8. PHOSLO [Concomitant]
  9. BENADRYL [Concomitant]
  10. EPOGEN [Concomitant]
  11. VENOFER [Concomitant]
  12. ZEMPLAR [Concomitant]
  13. HEPARIN [Concomitant]

REACTIONS (1)
  - DERMATITIS EXFOLIATIVE GENERALISED [None]
